FAERS Safety Report 6278491-3 (Version None)
Quarter: 2009Q3

REPORT INFORMATION
  Report Type: 
  Country: None (occurrence: None)
  Receive Date: 20090721
  Receipt Date: 20090707
  Transmission Date: 20100115
  Serious: Yes (Hospitalization)
  Sender: FDA-Public Use
  Company Number: 230011M09SWE

PATIENT
  Age: 54 Year
  Sex: Female

DRUGS (1)
  1. REBIF [Suspect]
     Dates: start: 20070101

REACTIONS (4)
  - DIARRHOEA [None]
  - GASTRIC DISORDER [None]
  - PRODUCT SUBSTITUTION ISSUE [None]
  - PYREXIA [None]
